FAERS Safety Report 9618437 (Version 3)
Quarter: 2013Q4

REPORT INFORMATION
  Report Type: Spontaneous
  Country: US (occurrence: US)
  Receive Date: 20131014
  Receipt Date: 20131105
  Transmission Date: 20140711
  Serious: Yes (Other)
  Sender: FDA-Public Use
  Company Number: US-PFIZER INC-2013288713

PATIENT
  Age: 78 Year
  Sex: Male

DRUGS (2)
  1. SUTENT [Suspect]
     Indication: RENAL CANCER
     Dosage: 50 MG, CYCLIC DAILY FOR 4 WEEKS ON AND 2 WEEKS OFF (ONCE DAILY X 28 DAYS 14DAY OFF)
     Route: 048
     Dates: start: 20130617, end: 20131004
  2. SUTENT [Suspect]
     Dosage: 50 MG, CYCLIC DAILY X 2 WEEKS ON AND 1 WEEK OFF
     Route: 048
     Dates: start: 20131004

REACTIONS (4)
  - Rash [Unknown]
  - Stomatitis [Unknown]
  - Asthenia [Unknown]
  - Pain [Unknown]
